FAERS Safety Report 4766103-7 (Version None)
Quarter: 2005Q3

REPORT INFORMATION
  Report Type: 
  Country: None (occurrence: None)
  Receive Date: 20050909
  Receipt Date: 20041123
  Transmission Date: 20060218
  Serious: No
  Sender: FDA-Public Use
  Company Number: ALMO2004038

PATIENT
  Age: 31 Year
  Sex: Female
  Weight: 57 kg

DRUGS (2)
  1. ALMOGRAN [Suspect]
     Indication: MIGRAINE
     Dosage: 12.5 MG DAILY PO
     Route: 048
     Dates: start: 20040301
  2. VALETTE [Concomitant]

REACTIONS (3)
  - ANGINA PECTORIS [None]
  - CHEST DISCOMFORT [None]
  - TACHYCARDIA [None]
